FAERS Safety Report 4361198-7 (Version None)
Quarter: 2004Q2

REPORT INFORMATION
  Report Type: 
  Country: None (occurrence: None)
  Receive Date: 20040510
  Receipt Date: 20030304
  Transmission Date: 20050107
  Serious: Yes (Hospitalization)
  Sender: FDA-Public Use
  Company Number: TAP2002Q02894

PATIENT
  Sex: Female
  Weight: 62.1428 kg

DRUGS (1)
  1. LUPRON DEPOT-3 [Suspect]
     Indication: ENDOMETRIOSIS
     Dosage: 11.25 MG, 1 IN 3 M, INTRAMUSCULAR
     Route: 030
     Dates: start: 20020925

REACTIONS (3)
  - CONDITION AGGRAVATED [None]
  - PELVIC PAIN [None]
  - SYNCOPE [None]
